FAERS Safety Report 11558947 (Version 1)
Quarter: 2015Q3

REPORT INFORMATION
  Report Type: Spontaneous
  Country: US (occurrence: None)
  Receive Date: 20150925
  Receipt Date: 20150925
  Transmission Date: 20151125
  Serious: No
  Sender: FDA-Public Use
  Company Number: None

PATIENT
  Age: 69 Year
  Sex: Female

DRUGS (1)
  1. ENBREL [Suspect]
     Active Substance: ETANERCEPT
     Indication: RHEUMATOID ARTHRITIS
     Dosage: SURECLICK
     Route: 058
     Dates: start: 20120329

REACTIONS (2)
  - Product label issue [None]
  - Circumstance or information capable of leading to device use error [None]

NARRATIVE: CASE EVENT DATE: 20150922
